FAERS Safety Report 5088393-6 (Version None)
Quarter: 2006Q3

REPORT INFORMATION
  Report Type: 
  Country: None (occurrence: None)
  Receive Date: 20060821
  Receipt Date: 20060710
  Transmission Date: 20061208
  Serious: Yes (Hospitalization)
  Sender: FDA-Public Use
  Company Number: 2006001373

PATIENT
  Age: 66 Year
  Sex: Male

DRUGS (5)
  1. ERLOTINIB [Suspect]
     Dosage: 150 MG (QD),ORAL
     Route: 048
     Dates: start: 20060627, end: 20060705
  2. CETUXIMAB (CETUXIMAB) (INJECTION FOR INFUSION) [Suspect]
     Dosage: 465 MG, INTRAVENOUS
     Route: 042
     Dates: start: 20060627, end: 20060705
  3. ASPIRIN [Concomitant]
  4. NAPROXEN [Concomitant]
  5. LEVAQUIN [Concomitant]

REACTIONS (8)
  - ANOREXIA [None]
  - DEHYDRATION [None]
  - DIARRHOEA [None]
  - HYPERCALCAEMIA [None]
  - NAUSEA [None]
  - URINARY TRACT INFECTION [None]
  - VOMITING [None]
  - WEIGHT DECREASED [None]
